FAERS Safety Report 5847240-2 (Version None)
Quarter: 2008Q3

REPORT INFORMATION
  Report Type: 
  Country: None (occurrence: None)
  Receive Date: 20080815
  Receipt Date: 20080810
  Transmission Date: 20090109
  Serious: Yes (Hospitalization, Other)
  Sender: FDA-Public Use
  Company Number: CA-BOEHRINGER INGELHEIM GMBH, GERMANY-2008-CN-00390CN

PATIENT
  Sex: Male

DRUGS (1)
  1. FLOMAX [Suspect]
     Dates: start: 20080103

REACTIONS (13)
  - ASTHENIA [None]
  - BONE NEOPLASM MALIGNANT [None]
  - CONSTIPATION [None]
  - DIZZINESS [None]
  - DRUG INEFFECTIVE [None]
  - FALL [None]
  - INSOMNIA [None]
  - MALAISE [None]
  - NOCTURIA [None]
  - PAIN [None]
  - PROSTATE CANCER [None]
  - RENAL FAILURE [None]
  - WEIGHT DECREASED [None]
